FAERS Safety Report 15391142 (Version 2)
Quarter: 2018Q4

REPORT INFORMATION
  Report Type: Report from Study
  Country: US (occurrence: US)
  Receive Date: 20180917
  Receipt Date: 20181114
  Transmission Date: 20190204
  Serious: Yes (Other)
  Sender: FDA-Public Use
  Company Number: US-BAYER-2018-168646

PATIENT
  Age: 79 Year
  Sex: Male

DRUGS (2)
  1. XOFIGO [Suspect]
     Active Substance: RADIUM RA-223 DICHLORIDE
     Indication: HORMONE-REFRACTORY PROSTATE CANCER
     Dosage: 104.9 ?CI
     Dates: start: 20180821, end: 20180821
  2. XOFIGO [Suspect]
     Active Substance: RADIUM RA-223 DICHLORIDE
     Indication: HORMONE-REFRACTORY PROSTATE CANCER
     Dosage: 103.1 ?CI
     Dates: start: 20180724, end: 20180724

REACTIONS (4)
  - Hydronephrosis [None]
  - Anuria [None]
  - Renal failure [Recovering/Resolving]
  - Urinary tract obstruction [None]

NARRATIVE: CASE EVENT DATE: 20180828
